FAERS Safety Report 11004925 (Version 2)
Quarter: 2015Q2

REPORT INFORMATION
  Report Type: Spontaneous
  Country: DE (occurrence: DE)
  Receive Date: 20150409
  Receipt Date: 20150528
  Transmission Date: 20150821
  Serious: Yes (Hospitalization)
  Sender: FDA-Public Use
  Company Number: DE-SA-2015SA042727

PATIENT
  Age: 81 Year
  Sex: Female
  Weight: 55 kg

DRUGS (11)
  1. BROMAZEPAM [Concomitant]
     Active Substance: BROMAZEPAM
  2. LANTUS [Concomitant]
     Active Substance: INSULIN GLARGINE
  3. SIMVASTATIN. [Concomitant]
     Active Substance: SIMVASTATIN
  4. GLIMEPIRIDE. [Suspect]
     Active Substance: GLIMEPIRIDE
     Indication: TYPE 2 DIABETES MELLITUS
     Route: 065
  5. RAMIPRIL COMP [Concomitant]
     Active Substance: HYDROCHLOROTHIAZIDE\RAMIPRIL
  6. ASPIRIN. [Concomitant]
     Active Substance: ASPIRIN
  7. AMLODIPIN [Concomitant]
     Active Substance: AMLODIPINE BESYLATE
  8. METOPROLOL SUCCINATE. [Concomitant]
     Active Substance: METOPROLOL SUCCINATE
  9. GLIBENCLAMIDE [Concomitant]
     Active Substance: GLYBURIDE
  10. METFORMIN [Suspect]
     Active Substance: METFORMIN HYDROCHLORIDE
     Indication: TYPE 2 DIABETES MELLITUS
     Route: 048
  11. L-THYROXIN [Concomitant]
     Active Substance: LEVOTHYROXINE SODIUM

REACTIONS (7)
  - Hypertension [Recovered/Resolved]
  - Bronchitis [Unknown]
  - Dyspnoea [Unknown]
  - Hypothyroidism [Unknown]
  - Thyroid operation [Unknown]
  - Cough [Unknown]
  - Hypoglycaemia [Unknown]

NARRATIVE: CASE EVENT DATE: 2013
